FAERS Safety Report 9335541 (Version 2)
Quarter: 2013Q3

REPORT INFORMATION
  Report Type: Report from Study
  Country: JP (occurrence: JP)
  Receive Date: 20130605
  Receipt Date: 20130905
  Transmission Date: 20140515
  Serious: No
  Sender: FDA-Public Use
  Company Number: JP-GLAXOSMITHKLINE-B0884234A

PATIENT
  Sex: Female
  Weight: 61 kg

DRUGS (22)
  1. LAMICTAL [Suspect]
     Indication: BIPOLAR I DISORDER
     Dosage: 25MG PER DAY
     Route: 048
     Dates: start: 20120123, end: 20120205
  2. LAMICTAL [Suspect]
     Indication: BIPOLAR I DISORDER
     Dosage: 25MG TWICE PER DAY
     Route: 048
     Dates: start: 20120206, end: 20120219
  3. LAMICTAL [Suspect]
     Indication: BIPOLAR I DISORDER
     Dosage: 50MG TWICE PER DAY
     Route: 048
     Dates: start: 20120220, end: 20120308
  4. LAMICTAL [Suspect]
     Indication: BIPOLAR I DISORDER
     Dosage: 100MG TWICE PER DAY
     Route: 048
     Dates: start: 20120309, end: 20120412
  5. LAMICTAL [Suspect]
     Indication: BIPOLAR I DISORDER
     Dosage: 150MG TWICE PER DAY
     Route: 048
     Dates: start: 20120413, end: 20120422
  6. LAMICTAL [Suspect]
     Indication: BIPOLAR I DISORDER
     Dosage: 50MG TWICE PER DAY
     Route: 048
     Dates: start: 20120423, end: 20120506
  7. LAMICTAL [Suspect]
     Indication: BIPOLAR I DISORDER
     Dosage: 100MG TWICE PER DAY
     Route: 048
     Dates: start: 20120507, end: 20120521
  8. LAMICTAL [Suspect]
     Indication: BIPOLAR I DISORDER
     Dosage: 150MG TWICE PER DAY
     Route: 048
     Dates: start: 20120522, end: 20121114
  9. LAMICTAL [Suspect]
     Indication: BIPOLAR I DISORDER
     Dosage: 100MG TWICE PER DAY
     Route: 048
     Dates: start: 20121115, end: 20121127
  10. LIMAS [Concomitant]
     Indication: DEPRESSION
     Route: 048
     Dates: end: 20120605
  11. LIMAS [Concomitant]
     Indication: DEPRESSION
     Route: 048
     Dates: start: 20120606, end: 20120802
  12. LIMAS [Concomitant]
     Indication: DEPRESSION
     Route: 048
     Dates: start: 20120803, end: 20121114
  13. DEPAKENE-R [Concomitant]
     Indication: DEPRESSION
     Route: 048
     Dates: start: 20121115, end: 20121127
  14. SOLANAX [Concomitant]
     Dosage: .8MG THREE TIMES PER DAY
     Route: 048
     Dates: end: 20121127
  15. SILECE [Concomitant]
     Dosage: 4MG PER DAY
     Route: 048
     Dates: end: 20120703
  16. DORAL [Concomitant]
     Dosage: 30MG PER DAY
     Route: 048
     Dates: end: 20120329
  17. EURODIN [Concomitant]
     Dosage: 4MG PER DAY
     Route: 048
     Dates: start: 20120206, end: 20120521
  18. SLOWHEIM [Concomitant]
     Dosage: 15MG PER DAY
     Route: 048
     Dates: start: 20120206, end: 20120329
  19. LEVOTOMIN [Concomitant]
     Dosage: 10MG PER DAY
     Route: 048
     Dates: start: 20120309, end: 20120930
  20. ROZEREM [Concomitant]
     Dosage: 8MG PER DAY
     Route: 048
     Dates: start: 20120409, end: 20121127
  21. BENOZIL [Concomitant]
     Dosage: 30MG PER DAY
     Route: 048
     Dates: start: 20120522, end: 20121101
  22. LUNESTA [Concomitant]
     Dosage: 3MG PER DAY
     Route: 048
     Dates: start: 20121102, end: 20121127

REACTIONS (1)
  - No adverse event [Unknown]
